FAERS Safety Report 17654328 (Version 4)
Quarter: 2020Q2

REPORT INFORMATION
  Report Type: Report from Study
  Country: CA (occurrence: CA)
  Receive Date: 20200410
  Receipt Date: 20200615
  Transmission Date: 20200713
  Serious: Yes (Other)
  Sender: FDA-Public Use
  Company Number: CA-GLAXOSMITHKLINE-CA2020AMR058165

PATIENT
  Sex: Male

DRUGS (7)
  1. PREDNISONE TABLET [Suspect]
     Active Substance: PREDNISONE
     Dosage: 40 MG
  2. PREDNISONE TABLET [Suspect]
     Active Substance: PREDNISONE
     Indication: PRODUCT USED FOR UNKNOWN INDICATION
     Dosage: 5 MG, QD, TABLET
     Route: 048
     Dates: start: 20190101
  3. SINGULAIR [Suspect]
     Active Substance: MONTELUKAST SODIUM
     Indication: PRODUCT USED FOR UNKNOWN INDICATION
     Dosage: 10 MG, QD, TABLET
     Route: 048
     Dates: start: 20150101
  4. ASA [Suspect]
     Active Substance: ASPIRIN
     Indication: PRODUCT USED FOR UNKNOWN INDICATION
     Dosage: UNK
  5. AMOXICILLIN. [Suspect]
     Active Substance: AMOXICILLIN
     Indication: PRODUCT USED FOR UNKNOWN INDICATION
     Dosage: UNK
  6. SYMBICORT [Suspect]
     Active Substance: BUDESONIDE\FORMOTEROL FUMARATE DIHYDRATE
     Indication: PRODUCT USED FOR UNKNOWN INDICATION
     Dosage: 1 DF, BID, INHALATION
     Dates: start: 20150101
  7. SALBUTAMOL SULPHATE [Suspect]
     Active Substance: ALBUTEROL SULFATE
     Indication: PRODUCT USED FOR UNKNOWN INDICATION
     Dosage: UNK UNK, PRN, 100 MCG
     Route: 055
     Dates: start: 20150101

REACTIONS (8)
  - Productive cough [Unknown]
  - Therapeutic product effect incomplete [Unknown]
  - Infection [Unknown]
  - Back pain [Unknown]
  - Sputum discoloured [Unknown]
  - Asthma [Unknown]
  - Drug hypersensitivity [Not Recovered/Not Resolved]
  - Blood count abnormal [Unknown]
